FAERS Safety Report 13513568 (Version 1)
Quarter: 2017Q2

REPORT INFORMATION
  Report Type: Spontaneous
  Country: US (occurrence: US)
  Receive Date: 20170504
  Receipt Date: 20170504
  Transmission Date: 20170830
  Serious: No
  Sender: FDA-Public Use
  Company Number: None

PATIENT
  Age: 34 Year
  Sex: Female
  Weight: 54.48 kg

DRUGS (1)
  1. SUBOXONE [Suspect]
     Active Substance: BUPRENORPHINE HYDROCHLORIDE\NALOXONE HYDROCHLORIDE
     Indication: DRUG USE DISORDER
     Dosage: 8/2MG ONE STRIP S, L, TID
     Route: 060
     Dates: start: 20170307, end: 20170320

REACTIONS (4)
  - Pain [None]
  - Product dosage form issue [None]
  - Headache [None]
  - Migraine [None]

NARRATIVE: CASE EVENT DATE: 20170307
